FAERS Safety Report 9485786 (Version 3)
Quarter: 2014Q1

REPORT INFORMATION
  Report Type: Report from Study
  Country: CN (occurrence: CN)
  Receive Date: 20130829
  Receipt Date: 20140221
  Transmission Date: 20141002
  Serious: Yes (Hospitalization)
  Sender: FDA-Public Use
  Company Number: CN-CELGENEUS-035-CCAZA-13082242

PATIENT
  Age: 67 Year
  Sex: Female
  Weight: 45 kg

DRUGS (18)
  1. AZACITIDINE INJECTABLE [Suspect]
     Indication: MYELODYSPLASTIC SYNDROME
     Dosage: 75 MILLIGRAM/SQ. METER
     Route: 058
     Dates: start: 20130408, end: 20130414
  2. AZACITIDINE INJECTABLE [Suspect]
     Dosage: 75 MILLIGRAM/SQ. METER
     Route: 058
     Dates: start: 20130719, end: 20130725
  3. AZACITIDINE INJECTABLE [Suspect]
     Dosage: 75 MILLIGRAM/SQ. METER
     Route: 058
     Dates: start: 20130820, end: 20130826
  4. AZACITIDINE INJECTABLE [Suspect]
     Dosage: 75 MILLIGRAM/SQ. METER
     Route: 058
     Dates: start: 20140123, end: 20140129
  5. ONDANSETRON HYDROCHLORIDE [Concomitant]
     Indication: PROPHYLAXIS OF NAUSEA AND VOMITING
     Dosage: 8 MILLIGRAM
     Route: 041
     Dates: start: 20130618, end: 20130624
  6. ONDANSETRON HYDROCHLORIDE [Concomitant]
     Dosage: 8 MILLIGRAM
     Route: 041
     Dates: start: 20130719, end: 20130725
  7. ONDANSETRON HYDROCHLORIDE [Concomitant]
     Dosage: 8 MILLIGRAM
     Route: 041
     Dates: start: 20130924, end: 20130930
  8. ONDANSETRON HYDROCHLORIDE [Concomitant]
     Dosage: 8 MILLIGRAM
     Route: 041
     Dates: start: 20131022, end: 20131028
  9. ONDANSETRON HYDROCHLORIDE [Concomitant]
     Dosage: 8 MILLIGRAM
     Route: 041
     Dates: start: 20131119, end: 20131125
  10. ONDANSETRON HYDROCHLORIDE [Concomitant]
     Dosage: 8 MILLIGRAM
     Route: 041
     Dates: start: 20130820, end: 20130826
  11. ESTAZOLAM [Concomitant]
     Indication: INSOMNIA
     Dosage: 1 MILLIGRAM
     Route: 048
     Dates: start: 20130618, end: 20130624
  12. ESTAZOLAM [Concomitant]
     Dosage: 1 MILLIGRAM
     Route: 048
     Dates: start: 20130811, end: 20130811
  13. ESTAZOLAM [Concomitant]
     Dosage: 2 MILLIGRAM
     Route: 048
     Dates: start: 20130716, end: 20130722
  14. LACTULOSE [Concomitant]
     Indication: CONSTIPATION PROPHYLAXIS
     Dosage: 45 MILLILITER
     Route: 048
     Dates: start: 20130618, end: 20130620
  15. LACTULOSE [Concomitant]
     Dosage: 100 MILLILITER
     Route: 048
     Dates: start: 20130820, end: 20130821
  16. ESOMEPRAZOLE [Concomitant]
     Indication: GASTRITIS
     Dosage: 20 MILLIGRAM
     Route: 048
     Dates: start: 20130621, end: 20130627
  17. TEPRENONE [Concomitant]
     Indication: GASTRITIS
     Dosage: 150 MILLIGRAM
     Route: 048
     Dates: start: 20130621, end: 20130627
  18. DOMPERIDONE [Concomitant]
     Indication: GASTRITIS
     Dosage: 30 MILLIGRAM
     Route: 048
     Dates: start: 20130621, end: 20130627

REACTIONS (1)
  - Arthritis [Recovering/Resolving]
